FAERS Safety Report 10280245 (Version 2)
Quarter: 2014Q3

REPORT INFORMATION
  Report Type: Report from Study
  Country: SE (occurrence: SE)
  Receive Date: 20140707
  Receipt Date: 20140707
  Transmission Date: 20150326
  Serious: Yes (Hospitalization)
  Sender: FDA-Public Use
  Company Number: SE-ASTELLAS-2014EU005023

PATIENT
  Age: 67 Year
  Sex: Female
  Weight: 59 kg

DRUGS (11)
  1. VESICARE [Suspect]
     Active Substance: SOLIFENACIN SUCCINATE
     Indication: HYPERTONIC BLADDER
     Route: 048
     Dates: start: 20140204, end: 20140227
  2. PLACEBO [Suspect]
     Active Substance: UNSPECIFIED INGREDIENT
     Indication: HYPERTONIC BLADDER
     Dosage: 5/10 MG 25 MG, ONCE DAILY
     Route: 048
     Dates: start: 20140228, end: 20140327
  3. BLINDED SOLIFENACIN-MIRABEGRON [Suspect]
     Active Substance: MIRABEGRON\SOLIFENACIN
     Indication: HYPERTONIC BLADDER
     Dosage: 5/10 MG 25 MG, ONCE DAILY
     Route: 048
     Dates: start: 20140228, end: 20140327
  4. BLINDED SOLIFENACIN [Suspect]
     Active Substance: SOLIFENACIN
     Indication: HYPERTONIC BLADDER
     Dosage: 5/10 MG 25 MG, ONCE DAILY
     Route: 048
     Dates: start: 20140228, end: 20140327
  5. DIOVAN COMP [Concomitant]
     Indication: HYPERTENSION
     Route: 048
     Dates: start: 1966
  6. BLINDED MIRABEGRON [Suspect]
     Active Substance: MIRABEGRON
     Indication: HYPERTONIC BLADDER
     Dosage: 5/10 MG 25 MG, ONCE DAILY
     Route: 048
     Dates: start: 20140228, end: 20140327
  7. BLINDED SOLIFENACIN [Suspect]
     Active Substance: SOLIFENACIN
     Dosage: 5/10 MG 50 MG, ONCE DAILY
     Route: 048
     Dates: start: 20140328, end: 20140421
  8. BLINDED MIRABEGRON [Suspect]
     Active Substance: MIRABEGRON
     Dosage: 5/10 MG 50 MG, ONCE DAILY
     Route: 048
     Dates: start: 20140328, end: 20140421
  9. DIOVAN COMP [Concomitant]
     Route: 065
  10. PLACEBO [Suspect]
     Active Substance: UNSPECIFIED INGREDIENT
     Dosage: 5/10 MG 50 MG, ONCE DAILY
     Route: 048
     Dates: start: 20140328, end: 20140421
  11. BLINDED SOLIFENACIN-MIRABEGRON [Suspect]
     Active Substance: MIRABEGRON\SOLIFENACIN
     Dosage: 5/10 MG 50 MG, ONCE DAILY
     Route: 048
     Dates: start: 20140328, end: 20140421

REACTIONS (1)
  - Multiple fractures [Recovering/Resolving]

NARRATIVE: CASE EVENT DATE: 20140421
